FAERS Safety Report 6065689-2 (Version None)
Quarter: 2009Q1

REPORT INFORMATION
  Report Type: 
  Country: None (occurrence: None)
  Receive Date: 20090130
  Receipt Date: 20090120
  Transmission Date: 20090719
  Serious: Yes (Hospitalization)
  Sender: FDA-Public Use
  Company Number: 200911631GPV

PATIENT
  Age: 64 Year
  Sex: Male

DRUGS (9)
  1. FLUDARABINE (FLUDARABINE) [Suspect]
     Indication: LYMPHOMA
     Dosage: 70 MG ORAL
     Route: 048
     Dates: start: 20080123
  2. FLUDARABINE (FLUDARABINE) [Suspect]
     Indication: LYMPHOMA
     Dosage: 70 MG ORAL
     Route: 048
     Dates: start: 20080220
  3. FLUDARABINE (FLUDARABINE) [Suspect]
     Indication: LYMPHOMA
     Dosage: 70 MG ORAL
     Route: 048
     Dates: start: 20080319
  4. FLUDARABINE (FLUDARABINE) [Suspect]
     Indication: LYMPHOMA
     Dosage: 70 MG ORAL
     Route: 048
     Dates: start: 20080425
  5. FLUDARABINE (FLUDARABINE) [Suspect]
     Indication: LYMPHOMA
     Dosage: 70 MG ORAL
     Route: 048
     Dates: start: 20080522
  6. FLUDARABINE (FLUDARABINE) [Suspect]
     Indication: LYMPHOMA
     Dosage: 70 MG ORAL
     Route: 048
     Dates: start: 20080619
  7. RITUXAN [Suspect]
     Indication: LYMPHOMA
     Dosage: 375 MG/M2 INTRAVENOUS
     Route: 042
     Dates: start: 20080123, end: 20080319
  8. BACTRIM DS [Suspect]
     Dosage: ORAL
     Route: 048
  9. VALACYCLOVIR HCL [Suspect]
     Dosage: 2 DF ORAL
     Route: 048

REACTIONS (9)
  - ARTHRALGIA [None]
  - DRUG HYPERSENSITIVITY [None]
  - DRUG INTOLERANCE [None]
  - HYPERHIDROSIS [None]
  - HYPERTHERMIA [None]
  - HYPOAESTHESIA [None]
  - HYPOVOLAEMIC SHOCK [None]
  - PAIN [None]
  - PYREXIA [None]
